FAERS Safety Report 15085016 (Version 1)
Quarter: 2018Q2

REPORT INFORMATION
  Report Type: Spontaneous
  Country: DE (occurrence: DE)
  Receive Date: 20180628
  Receipt Date: 20180628
  Transmission Date: 20180711
  Serious: Yes (Hospitalization, Other)
  Sender: FDA-Public Use
  Company Number: DE-ELI_LILLY_AND_COMPANY-DE201806008361

PATIENT

DRUGS (1)
  1. FORSTEO [Suspect]
     Active Substance: TERIPARATIDE
     Indication: PRODUCT USED FOR UNKNOWN INDICATION
     Dosage: UNK, UNKNOWN
     Route: 058
     Dates: start: 201603, end: 201801

REACTIONS (4)
  - Impaired healing [Unknown]
  - Urethral cancer [Unknown]
  - Metastases to lung [Unknown]
  - Spinal disorder [Unknown]

NARRATIVE: CASE EVENT DATE: 20170216
